FAERS Safety Report 21680631 (Version 3)
Quarter: 2022Q4

REPORT INFORMATION
  Report Type: Report from Study
  Country: US (occurrence: US)
  Receive Date: 20221205
  Receipt Date: 20221222
  Transmission Date: 20230113
  Serious: No
  Sender: FDA-Public Use
  Company Number: US-ABBVIE-4201112

PATIENT
  Sex: Female

DRUGS (1)
  1. RINVOQ [Suspect]
     Active Substance: UPADACITINIB
     Indication: Rheumatoid arthritis
     Route: 048
     Dates: start: 2014, end: 202207

REACTIONS (9)
  - Peripheral swelling [Unknown]
  - Pain in extremity [Unknown]
  - Skin discolouration [Not Recovered/Not Resolved]
  - Joint swelling [Unknown]
  - Immune system disorder [Unknown]
  - Limb discomfort [Unknown]
  - Walking aid user [Unknown]
  - Arthritis [Unknown]
  - Mobility decreased [Unknown]
